FAERS Safety Report 5499412-7 (Version None)
Quarter: 2007Q4

REPORT INFORMATION
  Report Type: 
  Country: None (occurrence: None)
  Receive Date: 20071026
  Receipt Date: 20071022
  Transmission Date: 20080405
  Serious: Yes (Other)
  Sender: FDA-Public Use
  Company Number: B0492072A

PATIENT
  Age: 79 Year
  Sex: Male
  Weight: 94 kg

DRUGS (5)
  1. AVODART [Suspect]
     Indication: BENIGN PROSTATIC HYPERPLASIA
     Route: 048
     Dates: start: 20051125, end: 20051211
  2. BENDROFLUMETHIAZIDE [Concomitant]
     Indication: HYPERTENSION
     Route: 048
     Dates: start: 20020806
  3. LOPERAMIDE HCL [Concomitant]
     Indication: DIARRHOEA
     Route: 048
     Dates: start: 20020520
  4. ATENOLOL [Concomitant]
     Indication: HYPERTENSION
     Route: 048
     Dates: start: 20020418
  5. EPILIM [Concomitant]
     Indication: EPILEPSY
     Route: 048
     Dates: start: 19960627

REACTIONS (2)
  - CHEST PAIN [None]
  - PARAESTHESIA [None]
